FAERS Safety Report 21526256 (Version 2)
Quarter: 2022Q4

REPORT INFORMATION
  Report Type: Spontaneous
  Country: JP (occurrence: JP)
  Receive Date: 20221031
  Receipt Date: 20221222
  Transmission Date: 20230113
  Serious: Yes (Hospitalization, Other)
  Sender: FDA-Public Use
  Company Number: JP-CHUGAI-2022035355

PATIENT
  Age: 74 Year
  Sex: Female

DRUGS (2)
  1. TECENTRIQ [Suspect]
     Active Substance: ATEZOLIZUMAB
     Indication: Triple negative breast cancer
     Dosage: 840 MILLIGRAM, ONCE/2WEEKS
     Route: 041
     Dates: start: 20220704
  2. PACLITAXEL [Suspect]
     Active Substance: PACLITAXEL
     Indication: Triple negative breast cancer
     Route: 041

REACTIONS (6)
  - Electrolyte imbalance [Recovered/Resolved]
  - Diarrhoea [Recovered/Resolved]
  - Blood glucose increased [Not Recovered/Not Resolved]
  - Decreased appetite [Unknown]
  - Hypokalaemia [Not Recovered/Not Resolved]
  - Neuropathy peripheral [Not Recovered/Not Resolved]

NARRATIVE: CASE EVENT DATE: 20220911
